FAERS Safety Report 22625503 (Version 1)
Quarter: 2023Q2

REPORT INFORMATION
  Report Type: Spontaneous
  Country: GB (occurrence: GB)
  Receive Date: 20230621
  Receipt Date: 20230621
  Transmission Date: 20230722
  Serious: Yes (Other)
  Sender: FDA-Public Use
  Company Number: GB-Calliditas-2023CAL00548

PATIENT

DRUGS (1)
  1. BUDESONIDE [Suspect]
     Active Substance: BUDESONIDE
     Indication: COVID-19
     Dosage: 800?G TWICE DAILY FOR 14 DAYS
     Route: 048

REACTIONS (3)
  - Adverse event [Unknown]
  - Adverse event [Unknown]
  - Adverse event [Unknown]
